FAERS Safety Report 23063181 (Version 2)
Quarter: 2023Q4

REPORT INFORMATION
  Report Type: Spontaneous
  Country: FR (occurrence: FR)
  Receive Date: 20231013
  Receipt Date: 20231101
  Transmission Date: 20240110
  Serious: Yes (Other)
  Sender: FDA-Public Use
  Company Number: FR-009507513-2310FRA003659

PATIENT
  Age: 78 Year
  Sex: Male
  Weight: 108 kg

DRUGS (1)
  1. PEMBROLIZUMAB [Suspect]
     Active Substance: PEMBROLIZUMAB
     Indication: Squamous cell carcinoma of skin
     Dosage: UNK
     Route: 065
     Dates: start: 202107, end: 202303

REACTIONS (1)
  - Skin squamous cell carcinoma recurrent [Unknown]

NARRATIVE: CASE EVENT DATE: 20230101
